FAERS Safety Report 21616608 (Version 1)
Quarter: 2022Q4

REPORT INFORMATION
  Report Type: Spontaneous
  Country: US (occurrence: US)
  Receive Date: 20221118
  Receipt Date: 20221118
  Transmission Date: 20230113
  Serious: No
  Sender: FDA-Public Use
  Company Number: US-SA-SAC20221114001275

PATIENT
  Sex: Female
  Weight: 74.84 kg

DRUGS (40)
  1. DUPIXENT [Suspect]
     Active Substance: DUPILUMAB
     Indication: Asthma
     Dosage: 300 MG, QOW
     Route: 058
  2. DUPIXENT [Suspect]
     Active Substance: DUPILUMAB
     Indication: Hypogammaglobulinaemia
  3. DUPIXENT [Suspect]
     Active Substance: DUPILUMAB
     Indication: Immunodeficiency common variable
  4. LIDOCAINE [Concomitant]
     Active Substance: LIDOCAINE
  5. EPINEPHRINE [Concomitant]
     Active Substance: EPINEPHRINE
  6. DIPHENHYDRAMINE [Concomitant]
     Active Substance: DIPHENHYDRAMINE
  7. ACETAMINOPHEN [Concomitant]
     Active Substance: ACETAMINOPHEN
  8. CUVITRU [Concomitant]
     Active Substance: HUMAN IMMUNOGLOBULIN G
     Dosage: 750MG
  9. KEFLEX [Concomitant]
     Active Substance: CEPHALEXIN
  10. VITAMIN C [ASCORBIC ACID;GLUCOSE] [Concomitant]
     Dosage: 000MG
  11. CLONIDINE HYDROCHLORIDE [Concomitant]
     Active Substance: CLONIDINE HYDROCHLORIDE
     Dosage: 2 MG
  12. PREDNISONE [Concomitant]
     Active Substance: PREDNISONE
     Dosage: 2 MG
  13. QUETIAPINE FUMARATE [Concomitant]
     Active Substance: QUETIAPINE FUMARATE
     Dosage: 10 MG
  14. CALCIUM [Concomitant]
     Active Substance: CALCIUM
     Dosage: 50 MG
  15. ZINC [Concomitant]
     Active Substance: ZINC
     Dosage: 50 MG
  16. METOPROLOL TARTRATE [Concomitant]
     Active Substance: METOPROLOL TARTRATE
     Dosage: 25 MG
  17. ALPRAZOLAM [Concomitant]
     Active Substance: ALPRAZOLAM
     Dosage: 100150 MG
  18. BENZALKONIUM CHLORIDE/BENZOCAINE/BORIC ACID/NEOMYCIN SULFATE/VITAMIN A [Concomitant]
     Dosage: 15MG
  19. MELOXICAM [Concomitant]
     Active Substance: MELOXICAM
  20. BUPROPION HYDROCHLORIDE [Concomitant]
     Active Substance: BUPROPION HYDROCHLORIDE
     Dosage: 100 MG, 1X
  21. CONCERTA [Concomitant]
     Active Substance: METHYLPHENIDATE HYDROCHLORIDE
     Dosage: 100 MG
  22. NYSTATIN [Concomitant]
     Active Substance: NYSTATIN
     Dosage: 36 MG, 1X
  23. TIZANIDINE HYDROCHLORIDE [Concomitant]
     Active Substance: TIZANIDINE HYDROCHLORIDE
     Dosage: 4 MG
  24. LASIX [Concomitant]
     Active Substance: FUROSEMIDE
     Dosage: 4 MG
  25. SPIRIVA [Concomitant]
     Active Substance: TIOTROPIUM BROMIDE MONOHYDRATE
     Dosage: 40MG
  26. FERROUS SULFATE [Concomitant]
     Active Substance: FERROUS SULFATE
     Dosage: 10 MG
  27. ACETAMINOPHEN\OXYCODONE HYDROCHLORIDE\OXYCODONE TEREPHTHALATE [Concomitant]
     Active Substance: ACETAMINOPHEN\OXYCODONE HYDROCHLORIDE\OXYCODONE TEREPHTHALATE
     Dosage: 32565 MG
  28. POTASSIUM CHLORIDE [Concomitant]
     Active Substance: POTASSIUM CHLORIDE
     Dosage: 400 MG
  29. THEOPHYLLINE [Concomitant]
     Active Substance: THEOPHYLLINE
     Dosage: 10 MG
  30. DALIRESP [Concomitant]
     Active Substance: ROFLUMILAST
     Dosage: 400 MG
  31. ADVAIR DISKUS [Concomitant]
     Active Substance: FLUTICASONE PROPIONATE\SALMETEROL XINAFOATE
  32. DOXYCYCLINE HYCLATE [Concomitant]
     Active Substance: DOXYCYCLINE HYCLATE
  33. SYNTHROID [Concomitant]
     Active Substance: LEVOTHYROXINE SODIUM
     Dosage: 100 MG
  34. MAGNESIUM [Concomitant]
     Active Substance: MAGNESIUM
  35. VITAMIN D NOS [Concomitant]
     Active Substance: VITAMIN D NOS
  36. FISH OIL [Concomitant]
     Active Substance: FISH OIL
  37. VITAMIN D2 [Concomitant]
     Active Substance: ERGOCALCIFEROL
     Dosage: 15 MG
  38. VITAMIN E [Concomitant]
     Active Substance: .ALPHA.-TOCOPHEROL
  39. DOXYCYCLINE [Concomitant]
     Active Substance: DOXYCYCLINE
  40. PROBIOTICS NOS [Concomitant]
     Active Substance: PROBIOTICS NOS
     Dosage: 100 MG

REACTIONS (2)
  - Muscle injury [Unknown]
  - Product use in unapproved indication [Unknown]
